FAERS Safety Report 8775539 (Version 1)
Quarter: 2012Q4

REPORT INFORMATION
  Report Type: 
  Country: BR (occurrence: BR)
  Receive Date: 20120910
  Receipt Date: 20120910
  Transmission Date: 20130627
  Serious: Yes (Other)
  Sender: FDA-Public Use
  Company Number: BR-BRISTOL-MYERS SQUIBB COMPANY-16932683

PATIENT
  Age: 59 Year
  Sex: Female

DRUGS (5)
  1. GLIFAGE XR [Suspect]
     Indication: BLOOD GLUCOSE INCREASED
     Dosage: Glifage XR 500mg (Pillules)
reg2:1 in 1 D
     Dates: start: 20120823
  2. PROPRANOLOL [Concomitant]
     Dosage: Tabs
  3. HYDROCHLOROTHIAZIDE [Concomitant]
     Dosage: Tabs
  4. SYNTHROID [Concomitant]
     Dates: start: 20120827
  5. METOPROLOL [Concomitant]
     Dates: start: 20120827

REACTIONS (6)
  - Cardiac arrest [Unknown]
  - Tachycardia [Recovered/Resolved]
  - Dizziness [Unknown]
  - Somnolence [Not Recovered/Not Resolved]
  - Malaise [Recovered/Resolved]
  - Hypotension [Recovered/Resolved]
